FAERS Safety Report 5459375-7 (Version None)
Quarter: 2007Q3

REPORT INFORMATION
  Report Type: 
  Country: None (occurrence: None)
  Receive Date: 20070919
  Receipt Date: 20070912
  Transmission Date: 20080115
  Serious: Yes (Life-Threatening, Hospitalization)
  Sender: FDA-Public Use
  Company Number: ES-AVENTIS-200714305EU

PATIENT
  Age: 64 Year
  Sex: Male

DRUGS (2)
  1. ENOXAPARIN SODIUM [Suspect]
     Indication: PULMONARY EMBOLISM
     Route: 058
     Dates: start: 20070720, end: 20070724
  2. TEMODAL [Suspect]
     Route: 048
     Dates: start: 20070629, end: 20070703

REACTIONS (1)
  - PANCYTOPENIA [None]
